FAERS Safety Report 8907325 (Version 1)
Quarter: 2012Q4

REPORT INFORMATION
  Report Type: 
  Country: ES (occurrence: ES)
  Receive Date: 20121114
  Receipt Date: 20121114
  Transmission Date: 20130627
  Serious: Yes (Death, Other)
  Sender: FDA-Public Use
  Company Number: PHHY2012ES104679

PATIENT
  Age: 69 Year
  Sex: Female

DRUGS (8)
  1. SANDIMMUN NEORAL [Suspect]
     Indication: RENAL TRANSPLANT
     Dosage: 100 mg, UNK
     Route: 048
     Dates: start: 20030605, end: 20090704
  2. CELLCEPT [Suspect]
     Indication: RENAL TRANSPLANT
     Dosage: 500 mg, UNK
     Route: 048
  3. DACORTIN [Concomitant]
  4. PACLITAXEL [Concomitant]
  5. TAXOL [Concomitant]
     Dates: start: 201011, end: 201105
  6. CARLIX [Concomitant]
     Dates: start: 201105
  7. GEMCITABINE [Concomitant]
     Dates: start: 201108
  8. DACARBAZINE [Concomitant]
     Dates: start: 201201

REACTIONS (4)
  - Angiosarcoma [Fatal]
  - Embolism venous [Unknown]
  - Haematotoxicity [Unknown]
  - Malignant neoplasm progression [Unknown]
